FAERS Safety Report 8737901 (Version 2)
Quarter: 2013Q4

REPORT INFORMATION
  Report Type: Spontaneous
  Country: GB (occurrence: GB)
  Receive Date: 20120823
  Receipt Date: 20131031
  Transmission Date: 20140711
  Serious: Yes (Other)
  Sender: FDA-Public Use
  Company Number: GB-009507513-1208GBR004254

PATIENT
  Age: 38 Year
  Sex: Male

DRUGS (2)
  1. PROPECIA 1MG FILM-COATED TABLET [Suspect]
     Indication: ANDROGENETIC ALOPECIA
     Dosage: 1 DF, QD
     Route: 048
  2. PROPECIA 1MG FILM-COATED TABLET [Suspect]
     Indication: ALOPECIA

REACTIONS (10)
  - Loss of consciousness [Unknown]
  - Anxiety [Unknown]
  - Depression [Unknown]
  - Feminisation acquired [Unknown]
  - Hormone level abnormal [Unknown]
  - Impaired work ability [Unknown]
  - Panic attack [Unknown]
  - Social problem [Unknown]
  - Suicidal ideation [Unknown]
  - Drug ineffective [Unknown]
